FAERS Safety Report 6864867-X (Version None)
Quarter: 2010Q3

REPORT INFORMATION
  Report Type: 
  Country: None (occurrence: None)
  Receive Date: 20100721
  Receipt Date: 20080407
  Transmission Date: 20110219
  Serious: No
  Sender: FDA-Public Use
  Company Number: US-PFIZER INC-2008031370

PATIENT
  Sex: Female
  Weight: 78.5 kg

DRUGS (5)
  1. CHANTIX [Suspect]
     Indication: SMOKING CESSATION THERAPY
     Dates: start: 20080201, end: 20080407
  2. LISINOPRIL [Concomitant]
     Indication: HYPERTENSION
  3. MEVACOR [Concomitant]
     Indication: BLOOD CHOLESTEROL INCREASED
  4. TYLENOL [Concomitant]
     Indication: ARTHRITIS
  5. XANAX [Concomitant]
     Indication: PANIC ATTACK

REACTIONS (5)
  - DYSGEUSIA [None]
  - HEADACHE [None]
  - NIGHTMARE [None]
  - STRESS [None]
  - URINE ODOUR ABNORMAL [None]
